FAERS Safety Report 5578520-6 (Version None)
Quarter: 2007Q4

REPORT INFORMATION
  Report Type: 
  Country: None (occurrence: None)
  Receive Date: 20071227
  Receipt Date: 20071213
  Transmission Date: 20080405
  Serious: Yes (Life-Threatening)
  Sender: FDA-Public Use
  Company Number: 17138

PATIENT
  Age: 65 Year
  Sex: Male
  Weight: 95 kg

DRUGS (13)
  1. CYTARABINE [Suspect]
     Indication: ACUTE MYELOID LEUKAEMIA
     Dosage: 200 MG/M2
     Dates: start: 20070326, end: 20070517
  2. KEPPRA [Suspect]
     Indication: EPILEPSY
     Dosage: 1 DF BID
     Dates: start: 20070321, end: 20070617
  3. AVASTIN [Suspect]
     Indication: ACUTE MYELOID LEUKAEMIA
     Dosage: 5 MG/KG
     Dates: start: 20070326, end: 20070526
  4. FRISIUM [Concomitant]
  5. FUNGIZONE [Concomitant]
  6. METOPROLOL SUCCINAAT [Concomitant]
  7. KONAKION [Concomitant]
  8. FLUCONAZOLE [Concomitant]
  9. LANOXIN [Concomitant]
  10. THIAMINE [Concomitant]
  11. CIPROFLOXACIN HCL [Concomitant]
  12. MERONEM [Concomitant]
  13. HALDOL [Concomitant]

REACTIONS (22)
  - ATELECTASIS [None]
  - BEDRIDDEN [None]
  - BLOOD LACTATE DEHYDROGENASE INCREASED [None]
  - BLOOD SODIUM DECREASED [None]
  - CARDIAC PACEMAKER INSERTION [None]
  - CENTRAL NERVOUS SYSTEM INFECTION [None]
  - COMA [None]
  - CONVULSION [None]
  - DRUG TOXICITY [None]
  - ENTEROCOCCAL BACTERAEMIA [None]
  - FEBRILE NEUTROPENIA [None]
  - GAMMA-GLUTAMYLTRANSFERASE INCREASED [None]
  - GASTROINTESTINAL OEDEMA [None]
  - HAEMOGLOBIN DECREASED [None]
  - ILEUS PARALYTIC [None]
  - JEJUNITIS [None]
  - LUNG INFILTRATION [None]
  - PERICARDIAL EFFUSION [None]
  - PLEURAL EFFUSION [None]
  - SKIN TOXICITY [None]
  - TOXIC ENCEPHALOPATHY [None]
  - WEIGHT DECREASED [None]
